FAERS Safety Report 5276860-1 (Version None)
Quarter: 2007Q1

REPORT INFORMATION
  Report Type: 
  Country: None (occurrence: None)
  Receive Date: 20070321
  Receipt Date: 20070115
  Transmission Date: 20070707
  Serious: Yes (Hospitalization)
  Sender: FDA-Public Use
  Company Number: TPA2006A02084

PATIENT
  Age: 69 Year
  Sex: Male

DRUGS (5)
  1. ROZEREM [Suspect]
     Dosage: PER ORAL
     Route: 048
     Dates: start: 20061113
  2. AMBIEN [Suspect]
  3. ZOCOR [Suspect]
     Dosage: 40 MG, 1 IN 1 D
  4. LASIX (FUROSEMIDE) (40 MILLIGRAM) [Concomitant]
  5. ASPIRIN [Concomitant]

REACTIONS (9)
  - ALANINE AMINOTRANSFERASE INCREASED [None]
  - BILIRUBIN CONJUGATED INCREASED [None]
  - BLOOD ALKALINE PHOSPHATASE INCREASED [None]
  - BLOOD BILIRUBIN INCREASED [None]
  - BRAIN NATRIURETIC PEPTIDE INCREASED [None]
  - CHEST DISCOMFORT [None]
  - INTERNATIONAL NORMALISED RATIO INCREASED [None]
  - SLEEP DISORDER [None]
  - VOMITING [None]
